FAERS Safety Report 20833337 (Version 2)
Quarter: 2022Q2

REPORT INFORMATION
  Report Type: Spontaneous
  Country: RO (occurrence: RO)
  Receive Date: 20220516
  Receipt Date: 20220523
  Transmission Date: 20220721
  Serious: Yes (Hospitalization, Other)
  Sender: FDA-Public Use
  Company Number: RO-ABBVIE-22K-135-4371623-00

PATIENT
  Age: 41 Year
  Sex: Male

DRUGS (2)
  1. ADALIMUMAB [Suspect]
     Active Substance: ADALIMUMAB
     Indication: Colitis
     Dosage: UNK (160 MG/80 MG)
     Route: 058
     Dates: start: 202103, end: 202103
  2. INFLIXIMAB [Suspect]
     Active Substance: INFLIXIMAB
     Indication: Colitis ulcerative
     Dosage: 300 MILLIGRAM (0,2,6 ) (START DATE: APR-2021)
     Route: 058
     Dates: end: 202109

REACTIONS (11)
  - Colitis ulcerative [Unknown]
  - Diarrhoea [Recovering/Resolving]
  - Inflammation [Recovered/Resolved]
  - General physical health deterioration [Recovering/Resolving]
  - Dehydration [Unknown]
  - Mucous stools [Not Recovered/Not Resolved]
  - Haematochezia [Not Recovered/Not Resolved]
  - Frequent bowel movements [Not Recovered/Not Resolved]
  - Colitis [Recovered/Resolved]
  - Weight increased [Unknown]
  - Drug ineffective for unapproved indication [Recovered/Resolved]

NARRATIVE: CASE EVENT DATE: 20210301
